FAERS Safety Report 8089072-3 (Version None)
Quarter: 2012Q1

REPORT INFORMATION
  Report Type: 
  Country: None (occurrence: None)
  Receive Date: 20120128
  Receipt Date: 20110707
  Transmission Date: 20120608
  Serious: Yes (Hospitalization)
  Sender: FDA-Public Use
  Company Number: US-ABBOTT-11P-163-0715356-00

PATIENT
  Sex: Female
  Weight: 70.824 kg

DRUGS (5)
  1. HUMIRA [Suspect]
     Indication: CROHN'S DISEASE
     Dosage: ONCE, 1ST LOADING DOSE
  2. UNKNOWN ALLERGY MEDICATION [Concomitant]
     Indication: HYPERSENSITIVITY
  3. PENTASA [Concomitant]
     Indication: PRODUCT USED FOR UNKNOWN INDICATION
  4. IMURAN [Concomitant]
     Indication: PRODUCT USED FOR UNKNOWN INDICATION
  5. HUMIRA [Suspect]
     Route: 058
     Dates: start: 20100901, end: 20101208

REACTIONS (6)
  - PYELONEPHRITIS [None]
  - DEHYDRATION [None]
  - URTICARIA [None]
  - WEIGHT INCREASED [None]
  - LEUKOCYTOCLASTIC VASCULITIS [None]
  - ABDOMINAL PAIN [None]
